FAERS Safety Report 8085359-9 (Version None)
Quarter: 2012Q1

REPORT INFORMATION
  Report Type: 
  Country: None (occurrence: None)
  Receive Date: 20120128
  Receipt Date: 20110406
  Transmission Date: 20120608
  Serious: Yes (Hospitalization, Other)
  Sender: FDA-Public Use
  Company Number: US-ABBOTT-10P-163-0641856-00

PATIENT
  Sex: Female
  Weight: 127.12 kg

DRUGS (4)
  1. METHOTREXATE [Concomitant]
     Indication: PRODUCT USED FOR UNKNOWN INDICATION
  2. OTHER MEDICATIONS [Concomitant]
     Indication: PRODUCT USED FOR UNKNOWN INDICATION
  3. HUMIRA [Suspect]
     Dates: start: 20100411
  4. HUMIRA [Suspect]
     Indication: PSORIASIS
     Dates: start: 20070401, end: 20100403

REACTIONS (6)
  - PNEUMONIA [None]
  - SINUSITIS [None]
  - INFECTION [None]
  - BRONCHITIS [None]
  - COUGH [None]
  - PSORIASIS [None]
